FAERS Safety Report 9871713 (Version 1)
Quarter: 2014Q1

REPORT INFORMATION
  Report Type: Spontaneous
  Country: US (occurrence: US)
  Receive Date: 20140205
  Receipt Date: 20140205
  Transmission Date: 20141002
  Serious: No
  Sender: FDA-Public Use
  Company Number: US-AMGEN-USASP2013021026

PATIENT
  Age: 70 Year
  Sex: Female

DRUGS (3)
  1. NEULASTA [Suspect]
     Indication: PRODUCT USED FOR UNKNOWN INDICATION
     Dosage: 6 MG, UNK
  2. CHEMOTHERAPEUTICS [Concomitant]
     Indication: LUNG NEOPLASM MALIGNANT
     Dosage: UNK, EVERY 21 DAYS
  3. OXYCODONE [Concomitant]
     Dosage: 5 MG, UNK

REACTIONS (3)
  - Feeling abnormal [Unknown]
  - Myalgia [Unknown]
  - Bone pain [Unknown]
